FAERS Safety Report 7022118-X (Version None)
Quarter: 2010Q3

REPORT INFORMATION
  Report Type: 
  Country: None (occurrence: None)
  Receive Date: 20100930
  Receipt Date: 20100920
  Transmission Date: 20110219
  Serious: Yes (Other)
  Sender: FDA-Public Use
  Company Number: JP-JNJFOC-20100906894

PATIENT
  Age: 57 Year
  Sex: Female

DRUGS (6)
  1. REMICADE [Suspect]
     Indication: RHEUMATOID ARTHRITIS
     Dosage: 4TH DOSE
     Route: 042
  2. REMICADE [Suspect]
     Dosage: 3RD DOSE
     Route: 042
  3. REMICADE [Suspect]
     Dosage: 5TH DOSE
     Route: 042
  4. REMICADE [Suspect]
     Dosage: 1ST DOSE
     Route: 042
  5. REMICADE [Suspect]
     Dosage: 2ND DOSE
     Route: 042
  6. METHOTREXATE [Concomitant]
     Indication: RHEUMATOID ARTHRITIS

REACTIONS (2)
  - HYPERSENSITIVITY [None]
  - MYOCLONUS [None]
